FAERS Safety Report 7425565-7 (Version None)
Quarter: 2011Q2

REPORT INFORMATION
  Report Type: 
  Country: None (occurrence: None)
  Receive Date: 20110420
  Receipt Date: 20110415
  Transmission Date: 20111010
  Serious: Yes (Hospitalization)
  Sender: FDA-Public Use
  Company Number: IT-PFIZER INC-2011075917

PATIENT
  Age: 70 Year
  Sex: Male

DRUGS (5)
  1. AVODART [Concomitant]
  2. ASPIRIN [Concomitant]
  3. OMNIC [Concomitant]
  4. GLYBURIDE [Suspect]
     Indication: DIABETES MELLITUS
     Dosage: 7.5 MG, DAILY
     Route: 048
     Dates: start: 20010329
  5. FELDENE [Suspect]
     Indication: BACK PAIN
     Dosage: 20 MG, 1X/DAY
     Route: 030
     Dates: start: 20110321, end: 20110327

REACTIONS (3)
  - GAIT DISTURBANCE [None]
  - HYPOGLYCAEMIA [None]
  - APHASIA [None]
